APPROVED DRUG PRODUCT: DIAPID
Active Ingredient: LYPRESSIN
Strength: 0.185MG/ML
Dosage Form/Route: SOLUTION;NASAL
Application: N016755 | Product #001
Applicant: NOVARTIS PHARMACEUTICALS CORP
Approved: Approved Prior to Jan 1, 1982 | RLD: No | RS: No | Type: DISCN